FAERS Safety Report 15584954 (Version 3)
Quarter: 2019Q1

REPORT INFORMATION
  Report Type: Spontaneous
  Country: AU (occurrence: AU)
  Receive Date: 20181102
  Receipt Date: 20190115
  Transmission Date: 20190417
  Serious: Yes (Congenital Anomaly, Other)
  Sender: FDA-Public Use
  Company Number: AU-TAKEDA-2018TUS031427

PATIENT
  Sex: Female

DRUGS (1)
  1. ENTYVIO [Suspect]
     Active Substance: VEDOLIZUMAB
     Indication: INFLAMMATORY BOWEL DISEASE
     Dosage: UNK
     Route: 015

REACTIONS (2)
  - Foetal exposure during pregnancy [Unknown]
  - Developmental hip dysplasia [Recovered/Resolved]
